FAERS Safety Report 4955392-1 (Version None)
Quarter: 2006Q1

REPORT INFORMATION
  Report Type: 
  Country: None (occurrence: None)
  Receive Date: 20060322
  Receipt Date: 20060310
  Transmission Date: 20060701
  Serious: Yes (Hospitalization)
  Sender: FDA-Public Use
  Company Number: 2006PV010033

PATIENT
  Age: 50 Year
  Sex: Male
  Weight: 108.8633 kg

DRUGS (7)
  1. BYETTA [Suspect]
     Indication: DIABETES MELLITUS NON-INSULIN-DEPENDENT
     Dosage: SEE IMAGE
     Route: 058
     Dates: start: 20051101, end: 20051201
  2. BYETTA [Suspect]
     Indication: DIABETES MELLITUS NON-INSULIN-DEPENDENT
     Dosage: SEE IMAGE
     Route: 058
     Dates: start: 20051201
  3. METFORMIN [Concomitant]
  4. LIPITOR [Concomitant]
  5. DARVOCET [Concomitant]
  6. LORTAB [Concomitant]
  7. LISINOPRIL [Concomitant]

REACTIONS (8)
  - ANKLE FRACTURE [None]
  - BLOOD GLUCOSE DECREASED [None]
  - FALL [None]
  - LIGAMENT INJURY [None]
  - LIMB DISCOMFORT [None]
  - MUSCLE RUPTURE [None]
  - TREMOR [None]
  - WEIGHT DECREASED [None]
